FAERS Safety Report 9971626 (Version 1)
Quarter: 2014Q1

REPORT INFORMATION
  Report Type: Report from Study
  Country: US (occurrence: US)
  Receive Date: 20140306
  Receipt Date: 20140306
  Transmission Date: 20141002
  Serious: No
  Sender: FDA-Public Use
  Company Number: US-ABBVIE-13P-163-1150459-00

PATIENT
  Age: 52 Year
  Sex: Female

DRUGS (7)
  1. HUMIRA [Suspect]
     Indication: CROHN^S DISEASE
     Dates: start: 20130827, end: 20130827
  2. HUMIRA [Suspect]
     Dates: start: 20130910, end: 20130910
  3. INFLUENZA VACCINE [Suspect]
     Indication: INFLUENZA IMMUNISATION
     Dates: start: 20130920, end: 20130920
  4. HEPATITIS B [Suspect]
     Indication: HEPATITIS B IMMUNISATION
     Dates: start: 20130920, end: 20130920
  5. MERCAPTOPURINE [Concomitant]
     Indication: CROHN^S DISEASE
  6. LEVOCIN [Concomitant]
     Indication: MIGRAINE
  7. ESTROPIPATE [Concomitant]
     Indication: BLOOD OESTROGEN

REACTIONS (3)
  - Asthenia [Not Recovered/Not Resolved]
  - Syncope [Not Recovered/Not Resolved]
  - Hyperhidrosis [Not Recovered/Not Resolved]
